FAERS Safety Report 19233448 (Version 3)
Quarter: 2022Q1

REPORT INFORMATION
  Report Type: Spontaneous
  Country: US (occurrence: None)
  Receive Date: 20210507
  Receipt Date: 20220330
  Transmission Date: 20220423
  Serious: Yes (Other)
  Sender: FDA-Public Use
  Company Number: 2021A385051

PATIENT
  Age: 79 Year
  Sex: Female
  Weight: 78 kg

DRUGS (42)
  1. NEXIUM [Suspect]
     Active Substance: ESOMEPRAZOLE MAGNESIUM
     Indication: Gastrooesophageal reflux disease
     Route: 048
     Dates: start: 2010, end: 2019
  2. NEXIUM [Suspect]
     Active Substance: ESOMEPRAZOLE MAGNESIUM
     Indication: Gastrooesophageal reflux disease
     Route: 048
     Dates: start: 201004, end: 201612
  3. LOSARTAN [Concomitant]
     Active Substance: LOSARTAN
     Indication: Hypertension
  4. ALLOPURINOL [Concomitant]
     Active Substance: ALLOPURINOL
     Indication: Gout
  5. VITAMIN D [Concomitant]
     Active Substance: VITAMIN D NOS
  6. ATORVASTATIN [Concomitant]
     Active Substance: ATORVASTATIN
  7. HYDRALAZINE [Concomitant]
     Active Substance: HYDRALAZINE HYDROCHLORIDE
  8. FUROSEMIDE [Concomitant]
     Active Substance: FUROSEMIDE
  9. METOPROLOL [Concomitant]
     Active Substance: METOPROLOL
  10. PROPRANOLOL [Concomitant]
     Active Substance: PROPRANOLOL HYDROCHLORIDE
  11. BUPROPION [Concomitant]
     Active Substance: BUPROPION
  12. OMEPRAZOLE [Concomitant]
     Active Substance: OMEPRAZOLE
  13. TRAMADOL [Concomitant]
     Active Substance: TRAMADOL
  14. HYDROCHLOROTHIAZIDE [Concomitant]
     Active Substance: HYDROCHLOROTHIAZIDE
  15. POTASSIUM [Concomitant]
     Active Substance: POTASSIUM
  16. AMOXICILLIN [Concomitant]
     Active Substance: AMOXICILLIN
  17. CEFDINIR [Concomitant]
     Active Substance: CEFDINIR
  18. AZITHROMYCIN [Concomitant]
     Active Substance: AZITHROMYCIN
  19. TEMAZEPAM [Concomitant]
     Active Substance: TEMAZEPAM
  20. DICYCLOMINE [Concomitant]
     Active Substance: DICYCLOMINE HYDROCHLORIDE
  21. COLCHICINE [Concomitant]
     Active Substance: COLCHICINE
  22. METHYLPREDNISOLONE [Concomitant]
     Active Substance: METHYLPREDNISOLONE
  23. CEPHALEXIN [Concomitant]
     Active Substance: CEPHALEXIN
  24. HIGH DENSITY POLYETHYLENE [Concomitant]
     Active Substance: HIGH DENSITY POLYETHYLENE
  25. PROMETHAZINE [Concomitant]
     Active Substance: PROMETHAZINE HYDROCHLORIDE
  26. PHENYTOIN [Concomitant]
     Active Substance: PHENYTOIN
  27. KLOR-CON [Concomitant]
     Active Substance: POTASSIUM CHLORIDE
  28. CELEBREX [Concomitant]
     Active Substance: CELECOXIB
  29. MELOXICAM [Concomitant]
     Active Substance: MELOXICAM
  30. ALVESCO [Concomitant]
     Active Substance: CICLESONIDE
  31. PROAIR HFA [Concomitant]
     Active Substance: ALBUTEROL SULFATE
  32. METOCLOPRAMIDE [Concomitant]
     Active Substance: METOCLOPRAMIDE
  33. HYOSCYAMINE [Concomitant]
     Active Substance: HYOSCYAMINE
  34. LYRICA [Concomitant]
     Active Substance: PREGABALIN
  35. TIZANIDINE [Concomitant]
     Active Substance: TIZANIDINE
  36. SUCRALFATE [Concomitant]
     Active Substance: SUCRALFATE
  37. BETAMETHASONE [Concomitant]
     Active Substance: BETAMETHASONE
  38. FENTANYL [Concomitant]
     Active Substance: FENTANYL
  39. ALENDRONATE [Concomitant]
     Active Substance: ALENDRONATE SODIUM
  40. FLURBIPROFEN [Concomitant]
     Active Substance: FLURBIPROFEN
  41. FEXOFENADINE [Concomitant]
     Active Substance: FEXOFENADINE HYDROCHLORIDE
  42. WELLBUTRIN [Concomitant]
     Active Substance: BUPROPION HYDROCHLORIDE

REACTIONS (1)
  - Chronic kidney disease [Not Recovered/Not Resolved]

NARRATIVE: CASE EVENT DATE: 20140101
